FAERS Safety Report 7818160-9 (Version None)
Quarter: 2011Q4

REPORT INFORMATION
  Report Type: 
  Country: None (occurrence: None)
  Receive Date: 20111017
  Receipt Date: 20111004
  Transmission Date: 20120403
  Serious: Yes (Hospitalization, Other)
  Sender: FDA-Public Use
  Company Number: US-BAYER-201029099NA

PATIENT
  Age: 26 Year
  Sex: Female
  Weight: 54 kg

DRUGS (4)
  1. YASMIN [Suspect]
     Indication: ORAL CONTRACEPTION
     Dosage: UNK UNK, UNK
     Route: 048
     Dates: start: 20050101, end: 20061215
  2. TAZORAC [Concomitant]
     Dosage: 0.05 %, UNK
     Route: 061
     Dates: start: 20060920
  3. DOXYCYCLINE [Concomitant]
     Dosage: 100 MG, UNK
     Route: 048
     Dates: start: 20060920
  4. DICYCLOMINE [Concomitant]
     Dosage: 10 MG, UNK
     Route: 048
     Dates: start: 20061113, end: 20061201

REACTIONS (4)
  - GALLBLADDER DISORDER [None]
  - ABDOMINAL PAIN [None]
  - NAUSEA [None]
  - BILIARY DYSKINESIA [None]
